FAERS Safety Report 19626742 (Version 1)
Quarter: 2021Q3

REPORT INFORMATION
  Report Type: Report from Study
  Country: CA (occurrence: CA)
  Receive Date: 20210729
  Receipt Date: 20210729
  Transmission Date: 20211014
  Serious: Yes (Hospitalization, Other)
  Sender: FDA-Public Use
  Company Number: CA-GLAXOSMITHKLINE-CA2021AMR162025

PATIENT
  Age: 64 Year
  Sex: Male

DRUGS (1)
  1. MEPOLIZUMAB [Suspect]
     Active Substance: MEPOLIZUMAB
     Indication: ASTHMA
     Dosage: 100 MG, Z (EVERY 4 WEEKS)
     Route: 058
     Dates: start: 20190821

REACTIONS (13)
  - Obesity [Unknown]
  - Sensory loss [Unknown]
  - Acute kidney injury [Unknown]
  - Ascites [Unknown]
  - Hyperkalaemia [Unknown]
  - Asthenia [Unknown]
  - Dyspnoea [Unknown]
  - Hyperhidrosis [Unknown]
  - White blood cell count increased [Unknown]
  - Oedema peripheral [Unknown]
  - Dizziness [Unknown]
  - Movement disorder [Unknown]
  - Paracentesis [Recovered/Resolved]

NARRATIVE: CASE EVENT DATE: 20210708
